FAERS Safety Report 9110622 (Version 1)
Quarter: 2013Q1

REPORT INFORMATION
  Report Type: Spontaneous
  Country: US (occurrence: US)
  Receive Date: 20130219
  Receipt Date: 20130219
  Transmission Date: 20140127
  Serious: No
  Sender: FDA-Public Use
  Company Number: US-BRISTOL-MYERS SQUIBB COMPANY-16937369

PATIENT
  Age: 49 Year
  Sex: Female
  Weight: 47.16 kg

DRUGS (5)
  1. ABATACEPT SUBQ INJECTION 125MG/ML [Suspect]
     Indication: RHEUMATOID ARTHRITIS
     Dosage: NO OF DOSES-4.LAST DOSE-05SEP12
     Route: 058
  2. VITAMIN C [Concomitant]
  3. MULTIVITAMINS [Concomitant]
  4. ZINC [Concomitant]
  5. MUCINEX [Concomitant]

REACTIONS (6)
  - Blood pressure increased [Unknown]
  - Headache [Unknown]
  - Nasopharyngitis [Unknown]
  - Dehydration [Unknown]
  - Anaemia [Unknown]
  - Contusion [Unknown]
